APPROVED DRUG PRODUCT: NARCAN
Active Ingredient: NALOXONE HYDROCHLORIDE
Strength: 4MG/SPRAY
Dosage Form/Route: SPRAY, METERED;NASAL
Application: N208411 | Product #001
Applicant: EMERGENT OPERATIONS IRELAND LTD
Approved: Nov 18, 2015 | RLD: Yes | RS: Yes | Type: OTC